FAERS Safety Report 23215694 (Version 1)
Quarter: 2023Q4

REPORT INFORMATION
  Report Type: Spontaneous
  Country: US (occurrence: US)
  Receive Date: 20231122
  Receipt Date: 20231122
  Transmission Date: 20240110
  Serious: No
  Sender: FDA-Public Use
  Company Number: US-AMGEN-USASP2023206636

PATIENT
  Age: 72 Year
  Sex: Female

DRUGS (5)
  1. OTEZLA [Suspect]
     Active Substance: APREMILAST
     Indication: Psoriasis
     Dosage: STARTER PACK DAY 1-5, ONE TABLET
     Route: 048
     Dates: start: 20231113, end: 20231113
  2. OTEZLA [Suspect]
     Active Substance: APREMILAST
     Dosage: STARTER PACK DAY 1-5, ONE TABLET
     Route: 048
     Dates: start: 20231114, end: 20231114
  3. OTEZLA [Suspect]
     Active Substance: APREMILAST
     Dosage: STARTER PACK DAY 1-5, TWO TABLETS
     Route: 048
     Dates: start: 20231115, end: 20231115
  4. OTEZLA [Suspect]
     Active Substance: APREMILAST
     Dosage: STARTER PACK DAY 1-5, TWO TABLETS
     Route: 048
     Dates: start: 20231116
  5. CLOBETASOL PROPIONATE [Concomitant]
     Active Substance: CLOBETASOL PROPIONATE
     Indication: Psoriasis
     Dosage: UNK
     Route: 048

REACTIONS (2)
  - Rash [Recovering/Resolving]
  - Off label use [Unknown]

NARRATIVE: CASE EVENT DATE: 20231114
